FAERS Safety Report 17821368 (Version 1)
Quarter: 2020Q2

REPORT INFORMATION
  Report Type: Spontaneous
  Country: CH (occurrence: CH)
  Receive Date: 20200525
  Receipt Date: 20200525
  Transmission Date: 20200714
  Serious: Yes (Death, Hospitalization)
  Sender: FDA-Public Use
  Company Number: CH-TEVA-2020-CH-1239445

PATIENT
  Age: 59 Year
  Sex: Female

DRUGS (2)
  1. TACROLIMUS. [Suspect]
     Active Substance: TACROLIMUS
     Indication: IMMUNOSUPPRESSANT DRUG THERAPY
     Route: 065
  2. MYCOPHENOLATE MOFETIL. [Suspect]
     Active Substance: MYCOPHENOLATE MOFETIL
     Indication: IMMUNOSUPPRESSANT DRUG THERAPY
     Route: 065

REACTIONS (17)
  - Pneumonia [Fatal]
  - Lymphangiosis carcinomatosa [Fatal]
  - Septic shock [Fatal]
  - Haemodynamic instability [Fatal]
  - Metastases to lung [Fatal]
  - Pancreatic necrosis [Fatal]
  - Lung adenocarcinoma [Fatal]
  - Intussusception [Fatal]
  - Acute respiratory distress syndrome [Fatal]
  - Pleural effusion [Fatal]
  - Respiratory failure [Fatal]
  - Intestinal obstruction [Fatal]
  - Multiple organ dysfunction syndrome [Fatal]
  - Colon adenoma [Fatal]
  - Arterial thrombosis [Fatal]
  - Pancreatic disorder [Fatal]
  - Hypercoagulation [Fatal]
